FAERS Safety Report 9816556 (Version 3)
Quarter: 2014Q4

REPORT INFORMATION
  Report Type: Spontaneous
  Country: US (occurrence: US)
  Receive Date: 20140114
  Receipt Date: 20141223
  Transmission Date: 20150529
  Serious: Yes (Hospitalization, Other)
  Sender: FDA-Public Use
  Company Number: US-009507513-1401USA000962

PATIENT
  Sex: Female
  Weight: 42.63 kg

DRUGS (5)
  1. FOSAMAX [Suspect]
     Active Substance: ALENDRONATE SODIUM
     Indication: OSTEOPOROSIS
     Dosage: 10 MG, QD
     Route: 048
  2. ALENDRONATE SODIUM. [Suspect]
     Active Substance: ALENDRONATE SODIUM
     Indication: OSTEOPOROSIS
     Dosage: 70MG, QW
     Route: 048
     Dates: start: 20080326, end: 20101220
  3. FOSAMAX [Suspect]
     Active Substance: ALENDRONATE SODIUM
     Dosage: 70 MG, QW
     Route: 048
     Dates: start: 20020525, end: 200601
  4. ALENDRONATE SODIUM. [Suspect]
     Active Substance: ALENDRONATE SODIUM
     Dosage: UNK
  5. FOSAMAX PLUS D [Suspect]
     Active Substance: ALENDRONATE SODIUM\CHOLECALCIFEROL
     Indication: OSTEOPOROSIS
     Dosage: 70 MG, QW
     Route: 048
     Dates: start: 20060227, end: 20080206

REACTIONS (29)
  - Intramedullary rod insertion [Unknown]
  - Intramedullary rod insertion [Unknown]
  - Depression [Unknown]
  - Femur fracture [Unknown]
  - Nephrolithiasis [Unknown]
  - Abnormal loss of weight [Unknown]
  - Spinal compression fracture [Unknown]
  - Anxiety [Unknown]
  - Nephropathy [Unknown]
  - Cancer surgery [Unknown]
  - Hyperlipidaemia [Unknown]
  - Blood disorder [Unknown]
  - Drug intolerance [Unknown]
  - Pain in extremity [Unknown]
  - Removal of internal fixation [Unknown]
  - Femur fracture [Unknown]
  - Hypertension [Unknown]
  - Gastrooesophageal reflux disease [Unknown]
  - Fall [Unknown]
  - Vitamin B12 deficiency [Unknown]
  - Arthralgia [Recovering/Resolving]
  - Constipation [Unknown]
  - Skin cancer [Unknown]
  - Sleep disorder [Unknown]
  - Eating disorder [Unknown]
  - Cataract [Unknown]
  - Upper limb fracture [Unknown]
  - Diverticulum [Unknown]
  - Urinary tract infection [Unknown]

NARRATIVE: CASE EVENT DATE: 2002
